FAERS Safety Report 5593205-8 (Version None)
Quarter: 2008Q1

REPORT INFORMATION
  Report Type: 
  Country: None (occurrence: None)
  Receive Date: 20080116
  Receipt Date: 20080107
  Transmission Date: 20080703
  Serious: Yes (Other)
  Sender: FDA-Public Use
  Company Number: US-AMGEN-STX255208

PATIENT
  Sex: Female
  Weight: 54.5 kg

DRUGS (4)
  1. ENBREL [Suspect]
     Indication: PSORIASIS
     Route: 058
     Dates: start: 20070701, end: 20071001
  2. ROZEREM [Concomitant]
  3. METHOTREXATE [Concomitant]
  4. HORMONE NOS [Concomitant]
     Route: 062

REACTIONS (4)
  - BALANCE DISORDER [None]
  - DIZZINESS [None]
  - LIVER FUNCTION TEST ABNORMAL [None]
  - STRABISMUS [None]
